FAERS Safety Report 5233300-6 (Version None)
Quarter: 2007Q1

REPORT INFORMATION
  Report Type: 
  Country: None (occurrence: None)
  Receive Date: 20070207
  Receipt Date: 20070129
  Transmission Date: 20070707
  Serious: Yes (Life-Threatening, Hospitalization, Other)
  Sender: FDA-Public Use
  Company Number: CZ-ABBOTT-07P-217-0356082-00

PATIENT
  Sex: Male
  Weight: 77.5 kg

DRUGS (9)
  1. ZEMPLAR [Suspect]
     Indication: HYPERPARATHYROIDISM SECONDARY
     Route: 042
     Dates: start: 20060405
  2. TORVACARD [Concomitant]
     Indication: HYPERCHOLESTEROLAEMIA
     Route: 048
     Dates: start: 20050101
  3. TENOLOC [Concomitant]
     Indication: HYPERTENSION
     Route: 048
     Dates: start: 20070101
  4. AMLODIPINE BESYLATE [Concomitant]
     Indication: HYPERTENSION
     Route: 048
     Dates: start: 20060902
  5. FUROSEMIDE [Concomitant]
     Indication: HYPERTENSION
     Route: 048
     Dates: start: 20050101
  6. ALLOPURINOL SODIUM [Concomitant]
     Indication: HYPERTENSION
     Route: 048
     Dates: start: 20050101
  7. CA CARBONICUM [Concomitant]
     Indication: HAEMODIALYSIS
     Route: 048
     Dates: start: 20050101
  8. SEVELAMER HYDROCHLORIDE [Concomitant]
     Indication: HAEMODIALYSIS
     Route: 048
     Dates: start: 20050101
  9. DIAZEPAM [Concomitant]
     Indication: INSOMNIA
     Route: 048

REACTIONS (5)
  - BLOOD POTASSIUM INCREASED [None]
  - DEHYDRATION [None]
  - HYPOTENSION [None]
  - LOSS OF CONSCIOUSNESS [None]
  - PULSE ABSENT [None]
